FAERS Safety Report 7258283-9 (Version None)
Quarter: 2011Q1

REPORT INFORMATION
  Report Type: 
  Country: None (occurrence: None)
  Receive Date: 20110129
  Receipt Date: 20100715
  Transmission Date: 20110831
  Serious: No
  Sender: FDA-Public Use
  Company Number: US-ABBOTT-10P-163-0657980-00

PATIENT
  Age: 58 Year
  Sex: Female

DRUGS (15)
  1. VITAMIN B-12 [Concomitant]
     Indication: PRODUCT USED FOR UNKNOWN INDICATION
  2. PRILOSEC [Concomitant]
     Indication: GASTROOESOPHAGEAL REFLUX DISEASE
     Route: 048
  3. MAGNESIUM [Concomitant]
     Indication: BLOOD MAGNESIUM DECREASED
     Route: 048
  4. SPIRONOLACTONE [Concomitant]
     Indication: DIURETIC THERAPY
     Route: 048
  5. LIBRAX [Concomitant]
     Indication: GASTROINTESTINAL DISORDER
     Route: 048
  6. MACRODANTIN [Concomitant]
     Indication: PROPHYLAXIS
     Route: 048
  7. ALLOPURINOL [Concomitant]
     Indication: BLOOD URIC ACID ABNORMAL
     Route: 048
  8. PAXIL [Concomitant]
     Indication: DEPRESSION
     Route: 048
  9. MACRODANTIN [Concomitant]
     Indication: URINARY TRACT INFECTION
  10. AMBIEN [Concomitant]
     Indication: SLEEP DISORDER
  11. HUMIRA [Suspect]
     Indication: CROHN'S DISEASE
     Dates: start: 20100201
  12. FOLIC ACID [Concomitant]
     Indication: PRODUCT USED FOR UNKNOWN INDICATION
     Route: 048
  13. ESTROGENIC SUBSTANCE [Concomitant]
     Indication: PRODUCT USED FOR UNKNOWN INDICATION
  14. LOMOTIL [Concomitant]
     Indication: DIARRHOEA
     Route: 048
  15. SYNTHROID [Concomitant]
     Indication: HYPOTHYROIDISM
     Route: 048

REACTIONS (3)
  - NAUSEA [None]
  - PRURITUS [None]
  - VOMITING [None]
